FAERS Safety Report 17166939 (Version 2)
Quarter: 2020Q1

REPORT INFORMATION
  Report Type: Spontaneous
  Country: US (occurrence: US)
  Receive Date: 20191217
  Receipt Date: 20200104
  Transmission Date: 20200409
  Serious: Yes (Death)
  Sender: FDA-Public Use
  Company Number: US-TEVA-2019-US-1153050

PATIENT
  Age: 44 Year
  Sex: Male

DRUGS (3)
  1. CYCLOBENZAPRINE. [Interacting]
     Active Substance: CYCLOBENZAPRINE
     Route: 065
  2. DEXTRO/LEVO METHORPHAN [Interacting]
     Active Substance: DEXTROMETHORPHAN\LEVOMETHORPHAN
     Dosage: DEXTRO/LEVO METHORPHAN
     Route: 065
  3. LOPERAMIDE [Suspect]
     Active Substance: LOPERAMIDE
     Route: 065

REACTIONS (4)
  - Overdose [Fatal]
  - Accident [Fatal]
  - Drug interaction [Fatal]
  - Toxicity to various agents [Fatal]
